FAERS Safety Report 4726097-7 (Version None)
Quarter: 2005Q3

REPORT INFORMATION
  Report Type: 
  Country: None (occurrence: None)
  Receive Date: 20050725
  Receipt Date: 20050713
  Transmission Date: 20060218
  Serious: Yes (Other)
  Sender: FDA-Public Use
  Company Number: HQWYE218414JUL05

PATIENT
  Sex: Female

DRUGS (1)
  1. EFFEXOR XR [Suspect]
     Dates: start: 20050201

REACTIONS (2)
  - HEPATITIS B SURFACE ANTIGEN POSITIVE [None]
  - OEDEMA PERIPHERAL [None]
